FAERS Safety Report 5807290-9 (Version None)
Quarter: 2008Q3

REPORT INFORMATION
  Report Type: 
  Country: None (occurrence: None)
  Receive Date: 20080711
  Receipt Date: 20080703
  Transmission Date: 20090109
  Serious: Yes (Hospitalization, Other)
  Sender: FDA-Public Use
  Company Number: US-ABBOTT-08P-163-0461063-00

PATIENT
  Sex: Female

DRUGS (8)
  1. VICODIN [Suspect]
     Indication: DRUG USE FOR UNKNOWN INDICATION
  2. PRAMLINTIDE ACETATE [Suspect]
     Indication: TYPE 2 DIABETES MELLITUS
     Dosage: TID PEN-INJECTOR
     Route: 058
     Dates: start: 20080101
  3. PRAMLINTIDE ACETATE [Suspect]
     Dosage: TID PEN-INJECTOR
     Route: 058
     Dates: start: 20080401
  4. QUETIAPINE FUMARATE [Suspect]
     Indication: DRUG USE FOR UNKNOWN INDICATION
  5. INSULIN ASPART [Concomitant]
     Indication: DRUG USE FOR UNKNOWN INDICATION
  6. INSULIN GLARGINE [Concomitant]
     Indication: DRUG USE FOR UNKNOWN INDICATION
  7. INSULIN GLULISINE [Concomitant]
     Indication: DRUG USE FOR UNKNOWN INDICATION
  8. DULOXETINE HYDROCHLORIDE [Concomitant]
     Indication: DRUG USE FOR UNKNOWN INDICATION

REACTIONS (4)
  - BLOOD GLUCOSE DECREASED [None]
  - NAUSEA [None]
  - SOMNOLENCE [None]
  - SUICIDAL IDEATION [None]
